FAERS Safety Report 5325079-4 (Version None)
Quarter: 2007Q2

REPORT INFORMATION
  Report Type: 
  Country: None (occurrence: None)
  Receive Date: 20070511
  Receipt Date: 20070511
  Transmission Date: 20071010
  Serious: No
  Sender: FDA-Public Use
  Company Number: None

PATIENT
  Age: 34 Year
  Sex: Female
  Weight: 56.6996 kg

DRUGS (2)
  1. KENALOG [Suspect]
     Indication: BURSITIS
     Dosage: 40 MG 1 X
     Route: 065
     Dates: start: 20060630, end: 20060630
  2. LIDOCAINE [Concomitant]

REACTIONS (2)
  - INCORRECT ROUTE OF DRUG ADMINISTRATION [None]
  - INJECTION SITE ATROPHY [None]
